FAERS Safety Report 6928295-0 (Version None)
Quarter: 2010Q3

REPORT INFORMATION
  Report Type: 
  Country: None (occurrence: None)
  Receive Date: 20100817
  Receipt Date: 20100812
  Transmission Date: 20110219
  Serious: Yes (Hospitalization)
  Sender: FDA-Public Use
  Company Number: CN-ROCHE-720576

PATIENT
  Age: 20 Year
  Sex: Male

DRUGS (1)
  1. PEGINTERFERON ALFA-2A [Suspect]
     Indication: HEPATITIS B
     Route: 058
     Dates: start: 20100803

REACTIONS (4)
  - ERYTHEMA [None]
  - HEART RATE INCREASED [None]
  - SKIN DISCOLOURATION [None]
  - URTICARIA [None]
